FAERS Safety Report 8578632-9 (Version None)
Quarter: 2012Q3

REPORT INFORMATION
  Report Type: 
  Country: None (occurrence: None)
  Receive Date: 20120808
  Receipt Date: 20120803
  Transmission Date: 20120928
  Serious: Yes (Death)
  Sender: FDA-Public Use
  Company Number: CN-ASTELLAS-2012US006416

PATIENT
  Age: 61 Year
  Sex: Male
  Weight: 86 kg

DRUGS (3)
  1. THYMALFASIN [Concomitant]
     Indication: IMMUNE ENHANCEMENT THERAPY
     Dosage: TWICE WEEKLY
     Route: 058
     Dates: start: 20120301
  2. ALIMTA [Concomitant]
     Indication: ADENOCARCINOMA
     Dosage: UNK
     Route: 065
     Dates: start: 20120701
  3. TARCEVA [Suspect]
     Indication: NON-SMALL CELL LUNG CANCER
     Dosage: 150 MG, UID/QD
     Route: 048
     Dates: start: 20120215

REACTIONS (4)
  - NEOPLASM MALIGNANT [None]
  - COUGH [None]
  - RASH [None]
  - DIARRHOEA [None]
